FAERS Safety Report 8922112 (Version 1)
Quarter: 2012Q4

REPORT INFORMATION
  Report Type: Spontaneous
  Country: US (occurrence: None)
  Receive Date: 20121120
  Receipt Date: 20121120
  Transmission Date: 20130627
  Serious: Yes (Hospitalization)
  Sender: FDA-Public Use
  Company Number: None

PATIENT
  Age: 50 Year
  Sex: Female
  Weight: 104.1 kg

DRUGS (1)
  1. SUTENT [Suspect]
     Indication: RENAL CELL CANCER
     Dosage: 50 mg daily po
     Route: 048
     Dates: start: 20121011

REACTIONS (2)
  - Pancreatitis [None]
  - Back pain [None]
